FAERS Safety Report 14313344 (Version 5)
Quarter: 2020Q4

REPORT INFORMATION
  Report Type: Spontaneous
  Country: PL (occurrence: PL)
  Receive Date: 20171221
  Receipt Date: 20201231
  Transmission Date: 20210113
  Serious: Yes (Other)
  Sender: FDA-Public Use
  Company Number: PL-AUROBINDO-AUR-APL-2017-45938

PATIENT
  Age: 29 Year
  Sex: Female

DRUGS (4)
  1. METOPROLOL. [Suspect]
     Active Substance: METOPROLOL
     Indication: TACHYCARDIA
     Dosage: 75 MILLIGRAM, ONCE A DAY
     Route: 065
  2. AMPICILLIN [Suspect]
     Active Substance: AMPICILLIN
     Indication: ENDOCARDITIS
     Dosage: 10 GRAM, ONCE A DAY
     Route: 065
  3. IRON [Suspect]
     Active Substance: IRON
     Indication: PRODUCT USED FOR UNKNOWN INDICATION
  4. CLOTRIMAZOLE. [Suspect]
     Active Substance: CLOTRIMAZOLE
     Indication: ENDOCARDITIS
     Dosage: UNK
     Route: 067

REACTIONS (5)
  - Leukopenia [Unknown]
  - Live birth [Unknown]
  - Exposure during pregnancy [Unknown]
  - Premature delivery [Unknown]
  - Maternal exposure during pregnancy [Recovered/Resolved]
